FAERS Safety Report 8739681 (Version 2)
Quarter: 2012Q4

REPORT INFORMATION
  Report Type: 
  Country: US (occurrence: US)
  Receive Date: 20120823
  Receipt Date: 20121107
  Transmission Date: 20130627
  Serious: Yes (Other)
  Sender: FDA-Public Use
  Company Number: US-ROCHE-1065341

PATIENT
  Age: 15 Year
  Sex: Male
  Weight: 66.74 kg

DRUGS (1)
  1. ACCUTANE [Suspect]
     Indication: ACNE
     Route: 065
     Dates: start: 19971110, end: 199805

REACTIONS (11)
  - Crohn^s disease [Unknown]
  - Gastric ulcer [Unknown]
  - Intestinal polyp [Unknown]
  - Suicidal ideation [Unknown]
  - Suicide attempt [Unknown]
  - Depression [Unknown]
  - Bipolar disorder [Unknown]
  - Irritable bowel syndrome [Unknown]
  - Crohn^s disease [Unknown]
  - Chapped lips [Unknown]
  - Lip dry [Unknown]
